FAERS Safety Report 8193484-7 (Version None)
Quarter: 2012Q1

REPORT INFORMATION
  Report Type: 
  Country: None (occurrence: None)
  Receive Date: 20120308
  Receipt Date: 20120227
  Transmission Date: 20120608
  Serious: Yes (Hospitalization, Other)
  Sender: FDA-Public Use
  Company Number: US-ELI_LILLY_AND_COMPANY-US201112005112

PATIENT
  Sex: Female
  Weight: 83.4 kg

DRUGS (16)
  1. SIMVASTATIN [Concomitant]
     Dosage: 80 MG, QD
  2. ADVAIR DISKUS 100/50 [Concomitant]
     Dosage: 250/50 2 PUFFS DAILY
  3. VENTOLIN                                /SCH/ [Concomitant]
     Dosage: 1 DF, PRN
  4. FORTEO [Suspect]
     Dosage: 20 UG, QD
     Route: 058
     Dates: start: 20110601
  5. ATENOLOL [Concomitant]
     Dosage: 100 MG, QD
  6. FLONASE [Concomitant]
     Dosage: UNK, BID
  7. EFFEXOR [Concomitant]
     Dosage: 75 MG, BID
  8. ACETAMINOPHEN AND HYDROCODONE BITARTRATE [Concomitant]
     Dosage: 4 TIMES DAILY AS NEEDED
  9. LOVAZA [Concomitant]
     Dosage: 2 G, BID
  10. VITAMIN D [Concomitant]
     Dosage: 2000 U, QD
  11. FORTEO [Suspect]
     Indication: OSTEOPOROSIS
     Dosage: 20 UG, QD
     Route: 058
  12. LEVOTHYROXINE SODIUM [Concomitant]
     Dosage: 50 UG, QD
  13. CALCIUM CITRATE [Concomitant]
     Dosage: 5 MG, BID
  14. MULTI-VITAMINS [Concomitant]
     Dosage: UNK, QD
  15. MIRALAX [Concomitant]
     Dosage: 17 G, PRN
  16. PREDNISONE TAB [Concomitant]
     Dosage: 10 MG, QD

REACTIONS (9)
  - PULMONARY EMBOLISM [None]
  - NEPHROLITHIASIS [None]
  - RHEUMATOID ARTHRITIS [None]
  - SPINAL FRACTURE [None]
  - DISORIENTATION [None]
  - DEEP VEIN THROMBOSIS [None]
  - CONDITION AGGRAVATED [None]
  - GENERAL PHYSICAL CONDITION ABNORMAL [None]
  - COMPRESSION FRACTURE [None]
